FAERS Safety Report 16361149 (Version 1)
Quarter: 2019Q3

REPORT INFORMATION
  Report Type: Spontaneous
  Country: US (occurrence: US)
  Receive Date: 20190524
  Receipt Date: 20190524
  Transmission Date: 20191004
  Serious: No
  Sender: FDA-Public Use
  Company Number: None

PATIENT
  Age: 53 Year
  Sex: Female
  Weight: 94.2 kg

DRUGS (2)
  1. LIDOCAINE INFUSION [Suspect]
     Active Substance: LIDOCAINE HYDROCHLORIDE
     Indication: PAIN MANAGEMENT
     Dosage: ?          OTHER FREQUENCY:1.5 MG/MIN;?
     Route: 041
     Dates: start: 20180418, end: 20180419
  2. HYDROMORPHONE [Concomitant]
     Active Substance: HYDROMORPHONE
     Dates: start: 20180418, end: 20180421

REACTIONS (2)
  - Diplopia [None]
  - Dizziness [None]

NARRATIVE: CASE EVENT DATE: 20180419
